FAERS Safety Report 9465864 (Version 1)
Quarter: 2013Q3

REPORT INFORMATION
  Report Type: Report from Study
  Country: AT (occurrence: AT)
  Receive Date: 20130820
  Receipt Date: 20130820
  Transmission Date: 20140515
  Serious: Yes (Hospitalization)
  Sender: FDA-Public Use
  Company Number: AT-BAYER-2013-099706

PATIENT
  Age: 83 Year
  Sex: Female

DRUGS (1)
  1. ASA [Suspect]
     Indication: ATRIAL FIBRILLATION

REACTIONS (1)
  - Atrial fibrillation [None]
